FAERS Safety Report 8601278-0 (Version None)
Quarter: 2012Q3

REPORT INFORMATION
  Report Type: 
  Country: None (occurrence: None)
  Receive Date: 20120817
  Receipt Date: 20120803
  Transmission Date: 20120928
  Serious: Yes (Hospitalization)
  Sender: FDA-Public Use
  Company Number: JP-MYLANLABS-2012S1016092

PATIENT
  Age: 13 Year
  Sex: Male
  Weight: 40 kg

DRUGS (2)
  1. AZATHIOPRINE SODIUM [Suspect]
     Indication: COLITIS ULCERATIVE
     Route: 065
  2. MERCAPTOPURINE [Suspect]
     Indication: COLITIS ULCERATIVE
     Route: 065

REACTIONS (1)
  - PANCREATITIS ACUTE [None]
